FAERS Safety Report 18652383 (Version 1)
Quarter: 2020Q4

REPORT INFORMATION
  Report Type: Spontaneous
  Country: ES (occurrence: ES)
  Receive Date: 20201223
  Receipt Date: 20201223
  Transmission Date: 20210114
  Serious: Yes (Hospitalization)
  Sender: FDA-Public Use
  Company Number: ES-AUROBINDO-AUR-APL-2020-058052

PATIENT
  Age: 47 Year
  Sex: Female
  Weight: 60 kg

DRUGS (10)
  1. DOCETAXEL CONCENTRATE FOR SOLUTION FOR INFUSION [Suspect]
     Active Substance: DOCETAXEL
     Dosage: 80 MILLIGRAM, CYCLICAL (ONCE IN EVERY 2 WEEKS)
     Route: 042
     Dates: start: 20201019, end: 20201019
  2. FLUOROURACIL. [Suspect]
     Active Substance: FLUOROURACIL
     Dosage: 3800 MICROGRAM, CYCLICAL (ONCE IN EVERY 2 WEEKS)
     Route: 042
     Dates: start: 20201019, end: 20201019
  3. AVELUMAB [Concomitant]
     Active Substance: AVELUMAB
     Dosage: 602 MILLIGRAM, CYCLICAL (ONCE IN EVERY 2 WEEKS)
     Route: 042
     Dates: start: 20201019, end: 20201019
  4. FLUOROURACIL. [Suspect]
     Active Substance: FLUOROURACIL
     Indication: GASTRIC CANCER
     Dosage: 3800 MICROGRAM, CYCLICAL (ONCE IN EVERY 2 WEEKS)
     Route: 042
     Dates: start: 20200930
  5. OXALIPLATIN CONCENTRATE FOR SOLUTION FOR INFUSION [Suspect]
     Active Substance: OXALIPLATIN
     Dosage: 140 MILLIGRAM, CYCLICAL (ONCE IN EVERY 2 WEEKS)
     Route: 042
     Dates: start: 20201019, end: 20201019
  6. DOCETAXEL CONCENTRATE FOR SOLUTION FOR INFUSION [Suspect]
     Active Substance: DOCETAXEL
     Indication: GASTRIC CANCER
     Dosage: 80 MILLIGRAM, CYCLICAL (ONCE IN EVERY 2 WEEKS)
     Route: 042
     Dates: start: 20200930
  7. OXALIPLATIN CONCENTRATE FOR SOLUTION FOR INFUSION [Suspect]
     Active Substance: OXALIPLATIN
     Indication: GASTRIC CANCER
     Dosage: 140 MILLIGRAM, CYCLICAL (ONCE IN EVERY 2 WEEKS)
     Route: 042
     Dates: start: 20200930
  8. LEUCOVORIN. [Suspect]
     Active Substance: LEUCOVORIN
     Indication: GASTRIC CANCER
     Dosage: 330 MILLIGRAM, CYCLICAL (ONCE IN EVERY 2 WEEKS)
     Route: 042
     Dates: start: 20200930
  9. LEUCOVORIN. [Suspect]
     Active Substance: LEUCOVORIN
     Dosage: 330 MILLIGRAM, CYCLICAL (ONCE IN EVERY 2 WEEKS)
     Route: 042
     Dates: start: 20201019, end: 20201019
  10. AVELUMAB [Concomitant]
     Active Substance: AVELUMAB
     Indication: GASTRIC CANCER
     Dosage: 602 MILLIGRAM, CYCLICAL (ONCE IN EVERY 2 WEEKS)
     Route: 042
     Dates: start: 20200930

REACTIONS (2)
  - Urinary tract infection [Recovered/Resolved]
  - Pyrexia [Recovered/Resolved]

NARRATIVE: CASE EVENT DATE: 20201102
